FAERS Safety Report 8248796-5 (Version None)
Quarter: 2012Q1

REPORT INFORMATION
  Report Type: 
  Country: None (occurrence: None)
  Receive Date: 20120331
  Receipt Date: 20120327
  Transmission Date: 20120608
  Serious: Yes (Life-Threatening, Hospitalization, Disabling, Other)
  Sender: FDA-Public Use
  Company Number: PHHY2012CA002726

PATIENT
  Sex: Female

DRUGS (14)
  1. STEROIDS NOS [Concomitant]
     Dosage: UNK UKN, UNK
  2. FOSAMAX [Concomitant]
     Dosage: UNK UKN, UNK
  3. VITAMIN D [Concomitant]
     Dosage: UNK UKN, UNK
  4. HYDROMORPHONE HCL [Concomitant]
     Dosage: UNK UKN, UNK
  5. ALENDRONATE SODIUM [Concomitant]
  6. GILENYA [Suspect]
     Indication: RELAPSING-REMITTING MULTIPLE SCLEROSIS
     Dosage: 0.5 MG, DAILY
     Route: 048
     Dates: start: 20111220, end: 20120129
  7. DITROPAN [Concomitant]
     Dosage: UNK UKN, UNK
  8. SYNTHROID [Concomitant]
     Dosage: UNK UKN, UNK
  9. OXYBUTYNIN [Concomitant]
  10. CELEBREX [Concomitant]
     Dosage: UNK UKN, UNK
  11. BIOCAL D FORTE [Concomitant]
     Dosage: UNK UKN, UNK
  12. CALCIUM CARBONATE [Concomitant]
     Dosage: UNK
  13. IRBESARTAN [Concomitant]
     Dosage: UNK UKN, UNK
  14. DILAUDID [Concomitant]
     Dosage: UNK UKN, UNK

REACTIONS (14)
  - GRAND MAL CONVULSION [None]
  - HEMIPARESIS [None]
  - ATAXIA [None]
  - HEADACHE [None]
  - FATIGUE [None]
  - LOSS OF CONSCIOUSNESS [None]
  - CSF PROTEIN INCREASED [None]
  - BLOOD MAGNESIUM DECREASED [None]
  - CENTRAL NERVOUS SYSTEM LESION [None]
  - PYREXIA [None]
  - BLOOD PRESSURE INCREASED [None]
  - HEPATIC ENZYME INCREASED [None]
  - MUSCLE RIGIDITY [None]
  - COGNITIVE DISORDER [None]
